FAERS Safety Report 9586432 (Version 2)
Quarter: 2013Q4

REPORT INFORMATION
  Report Type: Spontaneous
  Country: JP (occurrence: JP)
  Receive Date: 20131003
  Receipt Date: 20131008
  Transmission Date: 20140711
  Serious: Yes (Other)
  Sender: FDA-Public Use
  Company Number: JP-PFIZER INC-2013281167

PATIENT
  Age: 42 Year
  Sex: Male

DRUGS (4)
  1. HALCION [Suspect]
     Dosage: 0.25 MG, DAILY
     Route: 048
     Dates: start: 20130925
  2. DORAL [Concomitant]
  3. DEPAS [Concomitant]
  4. TETRAMIDE [Concomitant]

REACTIONS (1)
  - Suicide attempt [Recovered/Resolved]
